FAERS Safety Report 15115315 (Version 1)
Quarter: 2018Q3

REPORT INFORMATION
  Report Type: Spontaneous
  Country: US (occurrence: US)
  Receive Date: 20180706
  Receipt Date: 20180706
  Transmission Date: 20181010
  Serious: No
  Sender: FDA-Public Use
  Company Number: US-RECKITT BENCKISER HEALTHCARE INT LIMITED-RB-81253-2018

PATIENT
  Age: 25 Year
  Sex: Female

DRUGS (1)
  1. MUCINEX DM [Suspect]
     Active Substance: DEXTROMETHORPHAN HYDROBROMIDE\GUAIFENESIN
     Indication: PRODUCT USED FOR UNKNOWN INDICATION
     Dosage: 1200 MG (600MG 2 DOSES AT 12PM, AT 4PM ADN AT 8PM), TID
     Route: 065
     Dates: start: 20171221

REACTIONS (2)
  - Expired product administered [Unknown]
  - Accidental overdose [Unknown]
